FAERS Safety Report 9782942 (Version 1)
Quarter: 2013Q4

REPORT INFORMATION
  Report Type: Spontaneous
  Country: US (occurrence: None)
  Receive Date: 20131224
  Receipt Date: 20131224
  Transmission Date: 20140711
  Serious: No
  Sender: FDA-Public Use
  Company Number: None

PATIENT
  Age: 38 Year
  Sex: Female

DRUGS (5)
  1. TECFIDERA [Suspect]
     Indication: MULTIPLE SCLEROSIS
     Dosage: 1 CAPSULE?
     Route: 048
     Dates: start: 20130502, end: 20131223
  2. FLUOXETINE [Concomitant]
  3. ARMOUR THYROID [Concomitant]
  4. METFORMIN [Concomitant]
  5. LORTAB [Concomitant]

REACTIONS (1)
  - Dry mouth [None]
